FAERS Safety Report 11707780 (Version 1)
Quarter: 2015Q4

REPORT INFORMATION
  Report Type: Spontaneous
  Country: US (occurrence: US)
  Receive Date: 20151104
  Receipt Date: 20151104
  Transmission Date: 20160304
  Serious: No
  Sender: FDA-Public Use
  Company Number: US-ELI_LILLY_AND_COMPANY-US201101000211

PATIENT
  Age: 86 Year
  Sex: Female

DRUGS (4)
  1. FORTEO [Suspect]
     Active Substance: TERIPARATIDE
     Dosage: 20 UG, DAILY (1/D)
     Dates: end: 20110410
  2. FORTEO [Suspect]
     Active Substance: TERIPARATIDE
     Dosage: 20 UG, QD
  3. FORTEO [Suspect]
     Active Substance: TERIPARATIDE
     Indication: OSTEOPOROSIS
     Dosage: 20 UG, DAILY (1/D)
     Dates: start: 20101213
  4. FORTEO [Suspect]
     Active Substance: TERIPARATIDE
     Dosage: 20 UG, DAILY (1/D)

REACTIONS (31)
  - Myopia [Unknown]
  - Contusion [Unknown]
  - Listless [Unknown]
  - Insomnia [Recovering/Resolving]
  - Blood pressure increased [Unknown]
  - Limb discomfort [Unknown]
  - Decreased interest [Not Recovered/Not Resolved]
  - Fatigue [Unknown]
  - Decreased interest [Unknown]
  - Feeling abnormal [Unknown]
  - Pain in extremity [Unknown]
  - Depressed mood [Unknown]
  - Middle insomnia [Recovered/Resolved]
  - Musculoskeletal discomfort [Unknown]
  - Sleep disorder [Unknown]
  - Body height decreased [Not Recovered/Not Resolved]
  - Malaise [Unknown]
  - Feeling abnormal [Unknown]
  - Eating disorder [Unknown]
  - Contusion [Recovered/Resolved]
  - Injury associated with device [Unknown]
  - Asthenia [Unknown]
  - Initial insomnia [Recovered/Resolved]
  - Urinary tract disorder [Unknown]
  - Glaucoma [Not Recovered/Not Resolved]
  - Fear [Not Recovered/Not Resolved]
  - Intentional product misuse [Recovered/Resolved]
  - Pollakiuria [Unknown]
  - Decreased appetite [Unknown]
  - Visual impairment [Unknown]
  - Arthralgia [Unknown]

NARRATIVE: CASE EVENT DATE: 201012
